FAERS Safety Report 9305611 (Version 2)
Quarter: 2013Q2

REPORT INFORMATION
  Report Type: Spontaneous
  Country: JP (occurrence: None)
  Receive Date: 20130507
  Receipt Date: 20130624
  Transmission Date: 20140414
  Serious: Yes (Other)
  Sender: FDA-Public Use
  Company Number: 2013035783

PATIENT
  Age: 45 Year
  Sex: 0

DRUGS (1)
  1. SANGLOPOR [Suspect]
     Indication: BRUTON^S AGAMMAGLOBULINAEMIA
     Dosage: 5 G 1X/ MONTH INTRAVENOUS (NOT OTHERWISE SPECIFIED)
     Route: 042
     Dates: start: 20111206, end: 20111206

REACTIONS (15)
  - Visual acuity reduced [None]
  - Dysaesthesia [None]
  - Sensory disturbance [None]
  - Muscular weakness [None]
  - Tremor [None]
  - Autonomic neuropathy [None]
  - Erythema [None]
  - Pyrexia [None]
  - Drug ineffective [None]
  - Bruton^s agammaglobulinaemia [None]
  - Condition aggravated [None]
  - Headache [None]
  - Malaise [None]
  - Pain in extremity [None]
  - Dizziness [None]
